FAERS Safety Report 11966578 (Version 2)
Quarter: 2017Q2

REPORT INFORMATION
  Report Type: Spontaneous
  Country: US (occurrence: US)
  Receive Date: 20160127
  Receipt Date: 20170426
  Transmission Date: 20170829
  Serious: Yes (Hospitalization, Other)
  Sender: FDA-Public Use
  Company Number: US-JNJFOC-20160116493

PATIENT
  Age: 56 Year
  Sex: Female

DRUGS (5)
  1. COUMADIN [Concomitant]
     Active Substance: WARFARIN SODIUM
     Indication: DEEP VEIN THROMBOSIS
     Route: 065
  2. INFLIXIMAB, RECOMBINANT [Suspect]
     Active Substance: INFLIXIMAB
     Indication: MALABSORPTION
     Route: 042
     Dates: start: 2014, end: 2014
  3. BUDESONIDE. [Suspect]
     Active Substance: BUDESONIDE
     Indication: MALABSORPTION
     Route: 065
  4. INFLIXIMAB, RECOMBINANT [Suspect]
     Active Substance: INFLIXIMAB
     Indication: MALABSORPTION
     Route: 042
     Dates: start: 2014, end: 2014
  5. PREDNISONE. [Suspect]
     Active Substance: PREDNISONE
     Indication: MALABSORPTION
     Route: 065

REACTIONS (5)
  - Therapeutic response unexpected [Unknown]
  - Drug specific antibody present [Unknown]
  - Product use in unapproved indication [Unknown]
  - Malabsorption [Recovering/Resolving]
  - Off label use [Unknown]

NARRATIVE: CASE EVENT DATE: 2014
